FAERS Safety Report 13554034 (Version 2)
Quarter: 2017Q4

REPORT INFORMATION
  Report Type: Report from Study
  Country: JP (occurrence: JP)
  Receive Date: 20170517
  Receipt Date: 20171019
  Transmission Date: 20180320
  Serious: Yes (Hospitalization)
  Sender: FDA-Public Use
  Company Number: JP-ACTELION-A-CH2017-153876

PATIENT
  Age: 73 Year
  Sex: Female

DRUGS (20)
  1. PREDNISOLONE. [Concomitant]
     Active Substance: PREDNISOLONE
  2. LULICON [Concomitant]
     Active Substance: LULICONAZOLE
  3. TRACLEER [Suspect]
     Active Substance: BOSENTAN
     Dosage: 125 MG, BID
     Route: 048
     Dates: start: 20160510
  4. ACTONEL [Concomitant]
     Active Substance: RISEDRONATE SODIUM
  5. LOXONIN [Concomitant]
     Active Substance: LOXOPROFEN SODIUM
  6. BONALON [Concomitant]
     Active Substance: ALENDRONATE SODIUM
  7. FLUITRAN [Concomitant]
     Active Substance: TRICHLORMETHIAZIDE
  8. NEXIUM [Concomitant]
     Active Substance: ESOMEPRAZOLE MAGNESIUM
  9. NU-LOTAN [Concomitant]
     Active Substance: LOSARTAN POTASSIUM
  10. TAKECAB [Concomitant]
     Active Substance: VONOPRAZAN FUMURATE
  11. FERROUS SULFATE. [Concomitant]
     Active Substance: FERROUS SULFATE
  12. ADEMPAS [Concomitant]
     Active Substance: RIOCIGUAT
  13. TRACLEER [Suspect]
     Active Substance: BOSENTAN
     Indication: SCLERODERMA ASSOCIATED DIGITAL ULCER
     Dosage: 125 MG, BID
     Route: 048
     Dates: start: 20150915, end: 20160503
  14. GASMOTIN [Concomitant]
     Active Substance: MOSAPRIDE CITRATE
  15. DORNER [Concomitant]
     Active Substance: BERAPROST SODIUM
  16. COLONEL [Concomitant]
     Active Substance: CALCIUM POLYCARBOPHIL
  17. PROSTANDIN [Concomitant]
  18. PREDONINE [Concomitant]
     Active Substance: PREDNISOLONE
  19. FIBLAST [Concomitant]
  20. MALFA [Concomitant]
     Active Substance: ALUMINUM HYDROXIDE\MAGNESIUM HYDROXIDE

REACTIONS (5)
  - Ileus paralytic [Recovered/Resolved]
  - Diarrhoea [Recovered/Resolved]
  - Supraventricular extrasystoles [Not Recovered/Not Resolved]
  - Vomiting [Recovered/Resolved]
  - Faeces discoloured [Recovered/Resolved]

NARRATIVE: CASE EVENT DATE: 20160123
